FAERS Safety Report 23312584 (Version 3)
Quarter: 2024Q1

REPORT INFORMATION
  Report Type: Report from Study
  Country: US (occurrence: US)
  Receive Date: 20231219
  Receipt Date: 20240108
  Transmission Date: 20240410
  Serious: Yes (Other)
  Sender: FDA-Public Use
  Company Number: US-Merck Healthcare KGaA-2023473848

PATIENT
  Sex: Female

DRUGS (2)
  1. MAVENCLAD [Suspect]
     Active Substance: CLADRIBINE
     Indication: Multiple sclerosis
     Dosage: YEAR ONE MONTH ONE THERAPY
     Route: 048
     Dates: start: 20221009, end: 20221013
  2. MAVENCLAD [Suspect]
     Active Substance: CLADRIBINE
     Dosage: YEAR ONE MONTH TWO THERAPY: TWO TABLETS ON DAYS 1 TO 4 AND ONE TABLET ON DAY 5
     Route: 048
     Dates: start: 20221105, end: 20221109

REACTIONS (6)
  - Cyst [Unknown]
  - Back disorder [Unknown]
  - Adrenal mass [Unknown]
  - Pain [Unknown]
  - Arthritis [Unknown]
  - Muscular weakness [Unknown]
